FAERS Safety Report 25143997 (Version 2)
Quarter: 2025Q2

REPORT INFORMATION
  Report Type: Spontaneous
  Country: US (occurrence: US)
  Receive Date: 20250401
  Receipt Date: 20250422
  Transmission Date: 20250716
  Serious: Yes (Other)
  Sender: AUROBINDO
  Company Number: US-MLMSERVICE-20250311-PI439718-00152-4

PATIENT
  Age: 71 Year
  Sex: Female

DRUGS (3)
  1. PREDNISONE [Suspect]
     Active Substance: PREDNISONE
     Indication: Colitis ulcerative
     Route: 065
  2. FLUOROURACIL [Suspect]
     Active Substance: FLUOROURACIL
     Indication: Actinic keratosis
     Route: 061
  3. AZATHIOPRINE [Suspect]
     Active Substance: AZATHIOPRINE
     Indication: Colitis ulcerative
     Route: 065

REACTIONS (4)
  - Squamous cell carcinoma of skin [Recovered/Resolved]
  - Condition aggravated [Recovered/Resolved]
  - Paradoxical drug reaction [Recovered/Resolved]
  - Drug ineffective [Unknown]
